FAERS Safety Report 17756425 (Version 1)
Quarter: 2020Q2

REPORT INFORMATION
  Report Type: Spontaneous
  Country: US (occurrence: US)
  Receive Date: 20200506
  Receipt Date: 20200506
  Transmission Date: 20200714
  Serious: Yes (Life-Threatening, Hospitalization, Disabling)
  Sender: FDA-Public Use
  Company Number: None

PATIENT
  Age: 74 Year
  Sex: Male
  Weight: 90.72 kg

DRUGS (1)
  1. PROPRIETARY INJECTION WITH CHLORPROMAZINE, SCOPOLAMINE, ATROPINE [Suspect]
     Active Substance: ATROPINE SULFATE\CHLORPHENIRAMINE MALEATE\HYOSCYAMINE HYDROBROMIDE
     Indication: SMOKING CESSATION THERAPY
     Route: 058
     Dates: start: 20160509, end: 20160509

REACTIONS (8)
  - Agitation [None]
  - Restlessness [None]
  - Respiratory failure [None]
  - Aggression [None]
  - Hypersensitivity [None]
  - Speech disorder [None]
  - Chronic obstructive pulmonary disease [None]
  - Psychomotor hyperactivity [None]

NARRATIVE: CASE EVENT DATE: 20160509
